FAERS Safety Report 15914302 (Version 1)
Quarter: 2019Q1

REPORT INFORMATION
  Report Type: Spontaneous
  Country: US (occurrence: US)
  Receive Date: 20190204
  Receipt Date: 20190204
  Transmission Date: 20190417
  Serious: No
  Sender: FDA-Public Use
  Company Number: US-ABBVIE-18K-163-2453278-00

PATIENT
  Sex: Female
  Weight: 56.48 kg

DRUGS (52)
  1. ORENCIA [Concomitant]
     Active Substance: ABATACEPT
     Route: 065
  2. REMICADE [Concomitant]
     Active Substance: INFLIXIMAB
     Indication: PRODUCT USED FOR UNKNOWN INDICATION
     Dosage: WEEK 0
     Route: 065
  3. RITUXAN [Concomitant]
     Active Substance: RITUXIMAB
  4. BONIVA [Concomitant]
     Active Substance: IBANDRONATE SODIUM
     Indication: PRODUCT USED FOR UNKNOWN INDICATION
     Route: 065
  5. HUMIRA [Suspect]
     Active Substance: ADALIMUMAB
     Indication: RHEUMATOID ARTHRITIS
     Route: 058
     Dates: start: 201603, end: 201710
  6. METHOTREXATE (METHOTREXATE SODIUM) [Suspect]
     Active Substance: METHOTREXATE SODIUM
     Indication: RHEUMATOID ARTHRITIS
     Route: 065
  7. COSENTYX [Concomitant]
     Active Substance: SECUKINUMAB
     Indication: PRODUCT USED FOR UNKNOWN INDICATION
     Dosage: LOADING DOSE:WEEK 0
     Route: 065
  8. COSENTYX [Concomitant]
     Active Substance: SECUKINUMAB
     Dosage: LOADING DOSE:WEEK 2
     Route: 065
  9. BENLYSTA [Concomitant]
     Active Substance: BELIMUMAB
     Indication: PRODUCT USED FOR UNKNOWN INDICATION
     Route: 065
  10. SIMPONI ARIA [Concomitant]
     Active Substance: GOLIMUMAB
     Dosage: LOADING DOSE: WEEK 4
     Route: 065
  11. SIMPONI ARIA [Concomitant]
     Active Substance: GOLIMUMAB
     Route: 065
  12. REMICADE OTHER [Concomitant]
     Indication: PRODUCT USED FOR UNKNOWN INDICATION
  13. CIMZIA [Concomitant]
     Active Substance: CERTOLIZUMAB PEGOL
     Dosage: DAY 2 WEEK
     Route: 065
  14. ACTEMRA [Concomitant]
     Active Substance: TOCILIZUMAB
     Dosage: INFUSION DOSE:04/08MG/KG
     Route: 065
  15. ORENCIA [Concomitant]
     Active Substance: ABATACEPT
     Route: 065
  16. REMICADE [Concomitant]
     Active Substance: INFLIXIMAB
     Dosage: WEEK 6
     Route: 065
  17. REMICADE [Concomitant]
     Active Substance: INFLIXIMAB
     Dosage: FREQUENCY: EVERY SIX OR EIGHT WEEKS
     Route: 065
  18. SIMPONI [Concomitant]
     Active Substance: GOLIMUMAB
     Indication: PRODUCT USED FOR UNKNOWN INDICATION
     Route: 065
  19. OTEZLA [Concomitant]
     Active Substance: APREMILAST
     Route: 065
  20. ORENCIA [Concomitant]
     Active Substance: ABATACEPT
     Dosage: LOADING DOSE: WEEK 0
     Route: 065
  21. ORENCIA [Concomitant]
     Active Substance: ABATACEPT
     Dosage: LOADING DOSE: WEEK 2
     Route: 065
  22. ORENCIA [Concomitant]
     Active Substance: ABATACEPT
     Dosage: LOADING DOSE: WEEK 4
     Route: 065
  23. COSENTYX [Concomitant]
     Active Substance: SECUKINUMAB
     Dosage: LOADING DOSE: WEEK 3
     Route: 065
  24. COSENTYX [Concomitant]
     Active Substance: SECUKINUMAB
     Route: 065
  25. BENLYSTA [Concomitant]
     Active Substance: BELIMUMAB
     Dosage: LOADING DOSE: WEEK 2
     Route: 065
  26. BENLYSTA [Concomitant]
     Active Substance: BELIMUMAB
     Dosage: LOADING DOSE: WEEK 4
     Route: 065
  27. PROLIA [Concomitant]
     Active Substance: DENOSUMAB
     Route: 065
  28. ENBREL [Suspect]
     Active Substance: ETANERCEPT
     Indication: RHEUMATOID ARTHRITIS
     Route: 065
     Dates: start: 201710
  29. ORENCIA [Concomitant]
     Active Substance: ABATACEPT
     Indication: PRODUCT USED FOR UNKNOWN INDICATION
     Dosage: WEEK 0: ONE TIME IV LOADING DOSE
     Route: 065
  30. ORENCIA [Concomitant]
     Active Substance: ABATACEPT
     Route: 065
  31. RITUXAN [Concomitant]
     Active Substance: RITUXIMAB
  32. PROLIA [Concomitant]
     Active Substance: DENOSUMAB
     Indication: PRODUCT USED FOR UNKNOWN INDICATION
     Dosage: DAY 1
     Route: 065
  33. OTREXUP [Suspect]
     Active Substance: METHOTREXATE
     Indication: RHEUMATOID ARTHRITIS
     Route: 065
  34. CIMZIA [Concomitant]
     Active Substance: CERTOLIZUMAB PEGOL
     Indication: PRODUCT USED FOR UNKNOWN INDICATION
     Dosage: DAY 0 WEEK
     Route: 065
  35. REMICADE [Concomitant]
     Active Substance: INFLIXIMAB
     Dosage: WEEK 2
     Route: 065
  36. REMICADE [Concomitant]
     Active Substance: INFLIXIMAB
     Dosage: FREQUENCY: EVERY SIX OR EIGHT WEEKS
     Route: 065
  37. COSENTYX [Concomitant]
     Active Substance: SECUKINUMAB
     Dosage: LOADING DOSE: WEEK 4
     Route: 065
  38. COSENTYX [Concomitant]
     Active Substance: SECUKINUMAB
     Route: 065
  39. BENLYSTA [Concomitant]
     Active Substance: BELIMUMAB
     Dosage: LOADING DOSE: WEEK 0
     Route: 065
  40. SIMPONI ARIA [Concomitant]
     Active Substance: GOLIMUMAB
     Indication: PRODUCT USED FOR UNKNOWN INDICATION
     Dosage: LOADING DOSE: WEEK 4
     Route: 065
  41. RASUVO [Suspect]
     Active Substance: METHOTREXATE SODIUM
     Indication: RHEUMATOID ARTHRITIS
     Route: 065
  42. CIMZIA [Concomitant]
     Active Substance: CERTOLIZUMAB PEGOL
     Dosage: PEN:200MGX2
     Route: 065
  43. CIMZIA [Concomitant]
     Active Substance: CERTOLIZUMAB PEGOL
     Dosage: SYRINGE: FREQUENCY EVERY TWO OR FOUR WEEK
     Route: 065
  44. RITUXAN [Concomitant]
     Active Substance: RITUXIMAB
     Indication: PRODUCT USED FOR UNKNOWN INDICATION
  45. HCQ [Concomitant]
     Active Substance: HYDROXYCHLOROQUINE SULFATE
     Indication: RHEUMATOID ARTHRITIS
     Route: 065
     Dates: start: 201408
  46. CIMZIA [Concomitant]
     Active Substance: CERTOLIZUMAB PEGOL
     Dosage: DAY 4 WEEK
     Route: 065
  47. ACTEMRA [Concomitant]
     Active Substance: TOCILIZUMAB
     Indication: PRODUCT USED FOR UNKNOWN INDICATION
     Dosage: FREQUENCY:EVERY ONE OR TWO WEEK
     Route: 065
  48. COSENTYX [Concomitant]
     Active Substance: SECUKINUMAB
     Dosage: LOADING DOSE:WEEK 1
     Route: 065
  49. BENLYSTA [Concomitant]
     Active Substance: BELIMUMAB
     Route: 065
  50. RITUXAN [Concomitant]
     Active Substance: RITUXIMAB
  51. RECLAST [Concomitant]
     Active Substance: ZOLEDRONIC ACID
     Indication: PRODUCT USED FOR UNKNOWN INDICATION
     Route: 065
  52. OTEZLA [Concomitant]
     Active Substance: APREMILAST
     Indication: PRODUCT USED FOR UNKNOWN INDICATION
     Dosage: TITRATION PACK
     Route: 065

REACTIONS (4)
  - Hepatitis C [Unknown]
  - Pain [Not Recovered/Not Resolved]
  - Drug ineffective [Unknown]
  - Swelling [Not Recovered/Not Resolved]
